FAERS Safety Report 18712264 (Version 1)
Quarter: 2021Q1

REPORT INFORMATION
  Report Type: Spontaneous
  Country: BE (occurrence: BE)
  Receive Date: 20210107
  Receipt Date: 20210107
  Transmission Date: 20210419
  Serious: Yes (Hospitalization)
  Sender: FDA-Public Use
  Company Number: BE-TEVA-2020-BE-1865568

PATIENT
  Sex: Female

DRUGS (2)
  1. TETRAVAC ACELLULAIRE [Concomitant]
     Active Substance: DIPHTHERIA AND TETANUS TOXOIDS AND ACELLULAR PERTUSSIS ADSORBED AND INACTIVATED POLIOVIRUS VACCINE
     Route: 051
     Dates: start: 20201118
  2. IBUPROFEN 600 MG [Suspect]
     Active Substance: IBUPROFEN
     Indication: PAIN IN EXTREMITY
     Dosage: 1 DOSAGE FORMS
     Route: 065
     Dates: start: 20201118

REACTIONS (3)
  - Nasal obstruction [Unknown]
  - Hypersensitivity [Unknown]
  - Localised oedema [Unknown]
